FAERS Safety Report 10862951 (Version 2)
Quarter: 2015Q1

REPORT INFORMATION
  Report Type: Report from Study
  Country: US (occurrence: US)
  Receive Date: 20150223
  Receipt Date: 20150306
  Transmission Date: 20150721
  Serious: Yes (Other)
  Sender: FDA-Public Use
  Company Number: US-GILEAD-2015-0137393

PATIENT
  Sex: Male
  Weight: 92.5 kg

DRUGS (7)
  1. MULTIVITAMINS [Concomitant]
     Active Substance: VITAMINS
     Dosage: UNK, QD
     Route: 048
     Dates: start: 1991
  2. CREATINE [Concomitant]
     Active Substance: CREATINE
     Dosage: UNK
     Dates: start: 201307
  3. WHEY PROTEIN [Concomitant]
     Dosage: UNK
     Route: 048
     Dates: start: 201307
  4. BCAA                               /08274201/ [Concomitant]
     Dosage: UNK
     Dates: start: 201307
  5. GLUTAMINE [Concomitant]
     Active Substance: GLUTAMINE
     Dosage: UNK
     Route: 048
     Dates: start: 201307
  6. FINASTERIDE. [Concomitant]
     Active Substance: FINASTERIDE
     Dosage: 1.25 MG, QD
     Route: 048
     Dates: start: 2002
  7. EMTRICITABINE/TENOFOVIR DISOPROXIL FUMARATE [Suspect]
     Active Substance: EMTRICITABINE\TENOFOVIR DISOPROXIL
     Indication: PROPHYLAXIS AGAINST HIV INFECTION
     Dosage: 1 DF, QD
     Route: 048
     Dates: start: 20131029

REACTIONS (2)
  - Suicidal ideation [Recovered/Resolved]
  - Laceration [Recovered/Resolved with Sequelae]

NARRATIVE: CASE EVENT DATE: 20150108
